FAERS Safety Report 16487603 (Version 3)
Quarter: 2025Q3

REPORT INFORMATION
  Report Type: Spontaneous
  Country: EU (occurrence: EU)
  Receive Date: 20190627
  Receipt Date: 20250910
  Transmission Date: 20251021
  Serious: Yes (Hospitalization, Other)
  Sender: MYLAN
  Company Number: None

PATIENT
  Age: 31 Year
  Sex: Female

DRUGS (55)
  1. SERTRALINE [Suspect]
     Active Substance: SERTRALINE HYDROCHLORIDE
     Indication: Pain
     Dosage: 1 DOSAGE FORM, QD
     Dates: start: 200805
  2. SERTRALINE [Suspect]
     Active Substance: SERTRALINE HYDROCHLORIDE
     Indication: Headache
     Dosage: 50 MILLIGRAM, QD
     Dates: start: 200904
  3. IBUPROFEN [Suspect]
     Active Substance: IBUPROFEN
     Indication: Pain
  4. PANTOPRAZOLE [Suspect]
     Active Substance: PANTOPRAZOLE
     Indication: Product used for unknown indication
  5. PANTOPRAZOLE [Suspect]
     Active Substance: PANTOPRAZOLE
  6. PREGABALIN [Suspect]
     Active Substance: PREGABALIN
     Indication: Pain
     Dosage: 300 MILLIGRAM, BID
     Dates: start: 201003
  7. GABAPENTIN [Suspect]
     Active Substance: GABAPENTIN
     Indication: Pain
     Dosage: 300 MILLIGRAM, TID
     Dates: start: 200904
  8. GABAPENTIN [Suspect]
     Active Substance: GABAPENTIN
     Indication: Mental disorder
  9. ALPRAZOLAM [Suspect]
     Active Substance: ALPRAZOLAM
     Indication: Pain
     Dosage: 0.5 MILLIGRAM, TID
     Dates: start: 200805
  10. ALPRAZOLAM [Suspect]
     Active Substance: ALPRAZOLAM
     Indication: Persistent depressive disorder
  11. ACETAMINOPHEN\TRAMADOL [Suspect]
     Active Substance: ACETAMINOPHEN\TRAMADOL
     Indication: Pain
     Dosage: 2 DOSAGE FORM, QD
     Dates: start: 200709
  12. ACETAMINOPHEN\TRAMADOL [Suspect]
     Active Substance: ACETAMINOPHEN\TRAMADOL
     Dosage: 2 DOSAGE FORM, QD
     Dates: start: 200805
  13. ACETAMINOPHEN\TRAMADOL [Suspect]
     Active Substance: ACETAMINOPHEN\TRAMADOL
     Dosage: 37.5 MILLIGRAM, QD
     Dates: start: 200904
  14. ACETAMINOPHEN\TRAMADOL [Suspect]
     Active Substance: ACETAMINOPHEN\TRAMADOL
     Dosage: 2 DOSAGE FORM, QD
     Dates: start: 200904
  15. ACETAMINOPHEN\TRAMADOL [Suspect]
     Active Substance: ACETAMINOPHEN\TRAMADOL
     Dosage: 975 MILLIGRAM, QD
     Dates: start: 200805
  16. ACETAMINOPHEN\TRAMADOL [Suspect]
     Active Substance: ACETAMINOPHEN\TRAMADOL
  17. LEVOTHYROXINE SODIUM [Suspect]
     Active Substance: LEVOTHYROXINE SODIUM
     Indication: Pain
  18. LEVOTHYROXINE SODIUM [Suspect]
     Active Substance: LEVOTHYROXINE SODIUM
     Indication: Quadriparesis
  19. LEVOTHYROXINE SODIUM [Suspect]
     Active Substance: LEVOTHYROXINE SODIUM
  20. LEVOTHYROXINE SODIUM [Suspect]
     Active Substance: LEVOTHYROXINE SODIUM
  21. LEVOTHYROXINE SODIUM [Suspect]
     Active Substance: LEVOTHYROXINE SODIUM
  22. LEVOTHYROXINE SODIUM [Suspect]
     Active Substance: LEVOTHYROXINE SODIUM
  23. LEVOTHYROXINE SODIUM [Suspect]
     Active Substance: LEVOTHYROXINE SODIUM
  24. LEVOTHYROXINE SODIUM [Suspect]
     Active Substance: LEVOTHYROXINE SODIUM
  25. BACLOFEN [Suspect]
     Active Substance: BACLOFEN
     Indication: Pain
     Dosage: 10 MILLIGRAM, TID
     Dates: start: 200709
  26. BACLOFEN [Suspect]
     Active Substance: BACLOFEN
     Dosage: 10 MILLIGRAM, QD
     Dates: start: 200709
  27. BACLOFEN [Suspect]
     Active Substance: BACLOFEN
     Dosage: 25 MILLIGRAM, QD
     Dates: start: 200805
  28. BACLOFEN [Suspect]
     Active Substance: BACLOFEN
     Dosage: 25 MILLIGRAM, TID
     Dates: start: 200805
  29. BACLOFEN [Suspect]
     Active Substance: BACLOFEN
     Dosage: 25 MILLIGRAM, TID
     Dates: start: 200904
  30. BACLOFEN [Suspect]
     Active Substance: BACLOFEN
     Dosage: 25 MILLIGRAM, TID
     Dates: start: 201003
  31. CARBAMAZEPINE [Interacting]
     Active Substance: CARBAMAZEPINE
     Indication: Pain
     Dosage: 200 MILLIGRAM, TID
     Dates: start: 200709
  32. FEXOFENADINE HYDROCHLORIDE [Suspect]
     Active Substance: FEXOFENADINE HYDROCHLORIDE
     Indication: Pain
  33. FEXOFENADINE HYDROCHLORIDE [Suspect]
     Active Substance: FEXOFENADINE HYDROCHLORIDE
     Indication: Headache
  34. NEUROBION FORTE [Suspect]
     Active Substance: CYANOCOBALAMIN\PYRIDOXINE HYDROCHLORIDE\THIAMINE DISULFIDE
     Indication: Pain
  35. NEUROBION FORTE [Suspect]
     Active Substance: CYANOCOBALAMIN\PYRIDOXINE HYDROCHLORIDE\THIAMINE DISULFIDE
     Indication: Asthenia
  36. BUPRENORPHINE [Suspect]
     Active Substance: BUPRENORPHINE
     Indication: Bradyphrenia
     Dosage: 70 MICROGRAM, Q3D
     Dates: start: 200904
  37. BUPRENORPHINE [Suspect]
     Active Substance: BUPRENORPHINE
     Indication: Pain
  38. FENTANYL [Suspect]
     Active Substance: FENTANYL
     Indication: Pain
     Dosage: 100 MICROGRAM, Q3D
     Dates: start: 201003
  39. FENTANYL [Suspect]
     Active Substance: FENTANYL
  40. GINKGO [Suspect]
     Active Substance: GINKGO
     Indication: Rash
  41. GINKGO [Suspect]
     Active Substance: GINKGO
     Indication: Pain
  42. PIROXICAM [Suspect]
     Active Substance: PIROXICAM
     Indication: Pain
  43. DIAZEPAM [Suspect]
     Active Substance: DIAZEPAM
     Indication: Pain
     Dosage: 5 MILLIGRAM, QD
     Dates: start: 200709
  44. DIAZEPAM [Suspect]
     Active Substance: DIAZEPAM
     Dosage: QD, DOSE: 2 MG, 2 MG, 5 MG
     Dates: start: 201003
  45. DIAZEPAM [Suspect]
     Active Substance: DIAZEPAM
     Dosage: 1 DOSAGE FORM, QD
     Dates: start: 201003
  46. OXYCODONE [Suspect]
     Active Substance: OXYCODONE
     Indication: Pain
     Dosage: 10 MILLIGRAM, TID
     Dates: start: 200904
  47. OXYCODONE [Suspect]
     Active Substance: OXYCODONE
  48. OXYCODONE [Suspect]
     Active Substance: OXYCODONE
     Dosage: 10 MILLIGRAM, QD
     Dates: start: 200904
  49. OXYCODONE [Suspect]
     Active Substance: OXYCODONE
     Dosage: 30 MILLIGRAM, QD
     Dates: start: 201003
  50. OXYCODONE [Suspect]
     Active Substance: OXYCODONE
     Dosage: 10 MILLIGRAM, TID
     Dates: start: 201003
  51. RANITIDINE [Suspect]
     Active Substance: RANITIDINE
     Indication: Product used for unknown indication
     Dosage: 150 MILLIGRAM, BID
     Dates: start: 200709
  52. ESOMEPRAZOLE [Suspect]
     Active Substance: ESOMEPRAZOLE
     Indication: Asthenia
     Dosage: 20 MILLIGRAM, BID
     Dates: start: 201003
  53. TRAMADOL [Concomitant]
     Active Substance: TRAMADOL
     Indication: Pain
     Dosage: 37.5 MILLIGRAM, TID
     Dates: start: 200805
  54. TRAMADOL [Concomitant]
     Active Substance: TRAMADOL
     Dosage: 112.5 MILLIGRAM, QD
  55. NEUROBION FORTE [Concomitant]
     Active Substance: CYANOCOBALAMIN\PYRIDOXINE HYDROCHLORIDE\THIAMINE DISULFIDE
     Indication: Asthenia

REACTIONS (38)
  - Condition aggravated [Unknown]
  - Quadriparesis [Unknown]
  - Schizophrenia [Unknown]
  - Depression [Unknown]
  - Neurosis [Unknown]
  - Gastrointestinal motility disorder [Unknown]
  - Sensory disturbance [Unknown]
  - Disturbance in attention [Unknown]
  - Feeling abnormal [Unknown]
  - Syncope [Unknown]
  - Loss of consciousness [Unknown]
  - Conversion disorder [Unknown]
  - Diplopia [Unknown]
  - Erythema [Unknown]
  - Rash [Unknown]
  - Confusional state [Unknown]
  - Cognitive disorder [Unknown]
  - Asthenia [Unknown]
  - Sedation [Unknown]
  - Musculoskeletal stiffness [Unknown]
  - Oedema [Unknown]
  - Dizziness [Unknown]
  - Persistent depressive disorder [Unknown]
  - Psychomotor skills impaired [Unknown]
  - Vomiting [Unknown]
  - Nausea [Unknown]
  - Headache [Unknown]
  - Constipation [Unknown]
  - Euphoric mood [Unknown]
  - Anxiety [Unknown]
  - Pruritus [Unknown]
  - Fatigue [Unknown]
  - Drug interaction [Unknown]
  - Pain [Unknown]
  - Ill-defined disorder [Unknown]
  - Agitation [Unknown]
  - Ataxia [Unknown]
  - Drug ineffective [Unknown]
